FAERS Safety Report 8510397-9 (Version None)
Quarter: 2012Q3

REPORT INFORMATION
  Report Type: 
  Country: None (occurrence: None)
  Receive Date: 20120713
  Receipt Date: 20120706
  Transmission Date: 20120928
  Serious: Yes (Other)
  Sender: FDA-Public Use
  Company Number: JP-GILEAD-2012-0055648

PATIENT
  Sex: Male

DRUGS (5)
  1. DIFLUNISAL [Concomitant]
     Route: 048
     Dates: start: 20120408, end: 20120511
  2. ADCIRCA [Concomitant]
     Dosage: 20MG PER DAY
     Route: 048
     Dates: start: 20120502, end: 20120510
  3. AMBRISENTAN [Suspect]
     Indication: PULMONARY HYPERTENSION
     Dosage: 2.5MG PER DAY
     Route: 048
     Dates: start: 20120502, end: 20120511
  4. TOLVAPTAN [Concomitant]
     Dosage: 15MG PER DAY
     Route: 048
     Dates: start: 20120425, end: 20120507
  5. BERAPROST SODIUM [Concomitant]
     Dosage: 360MCG PER DAY
     Route: 048
     Dates: start: 20120427, end: 20120511

REACTIONS (1)
  - RENAL FAILURE ACUTE [None]
